FAERS Safety Report 16872868 (Version 1)
Quarter: 2019Q4

REPORT INFORMATION
  Report Type: Spontaneous
  Country: US (occurrence: US)
  Receive Date: 20191001
  Receipt Date: 20191001
  Transmission Date: 20200122
  Serious: Yes (Other)
  Sender: FDA-Public Use
  Company Number: None

PATIENT
  Age: 71 Year
  Sex: Male

DRUGS (2)
  1. N/A [Concomitant]
     Active Substance: UNSPECIFIED INGREDIENT
  2. H.P. ACTHAR [Suspect]
     Active Substance: CORTICOTROPIN
     Indication: PULMONARY SARCOIDOSIS
     Dosage: 80 IU SUBCUTANEOUS EVERY 72 HOURS?
     Route: 058
     Dates: start: 20190724, end: 20190829

REACTIONS (2)
  - Therapy cessation [None]
  - Adverse drug reaction [None]

NARRATIVE: CASE EVENT DATE: 20190829
